FAERS Safety Report 5505434-X (Version None)
Quarter: 2007Q4

REPORT INFORMATION
  Report Type: 
  Country: None (occurrence: None)
  Receive Date: 20071102
  Receipt Date: 20071023
  Transmission Date: 20080405
  Serious: Yes (Hospitalization)
  Sender: FDA-Public Use
  Company Number: AU-PURDUE-USA_2007_0029869

PATIENT
  Age: 53 Year
  Sex: Female

DRUGS (7)
  1. MS CONTIN [Suspect]
     Indication: DRUG USE FOR UNKNOWN INDICATION
     Dosage: UNK MG, UNK
     Route: 048
  2. DIAZEPAM [Suspect]
     Indication: DYSKINESIA
     Dosage: 2.5 MG, DAILY
     Route: 048
     Dates: start: 20070731, end: 20070812
  3. ACETAMINOPHEN [Concomitant]
     Indication: DRUG USE FOR UNKNOWN INDICATION
     Dosage: UNK MG, UNK
     Route: 048
  4. TRAMADOL HCL [Concomitant]
     Indication: MUSCULOSKELETAL PAIN
     Dosage: UNK MG, UNK
  5. ENDEP [Concomitant]
     Indication: MUSCULOSKELETAL PAIN
     Dosage: UNK MG, UNK
     Route: 048
  6. MICARDIS HCT [Concomitant]
     Indication: DRUG USE FOR UNKNOWN INDICATION
     Dosage: UNK MG, UNK
     Route: 048
  7. NOTEN [Concomitant]
     Indication: HYPERTENSION
     Dosage: UNK MG, UNK
     Route: 048

REACTIONS (2)
  - DEPRESSION [None]
  - SUICIDE ATTEMPT [None]
